FAERS Safety Report 5719651-7 (Version None)
Quarter: 2008Q2

REPORT INFORMATION
  Report Type: 
  Country: None (occurrence: None)
  Receive Date: 20080425
  Receipt Date: 20080425
  Transmission Date: 20081010
  Serious: No
  Sender: FDA-Public Use
  Company Number: None

PATIENT
  Age: 86 Year
  Sex: Male

DRUGS (1)
  1. ASPIRIN AND DIPYRIDAMOLE [Suspect]
     Dosage: 1 TAB BID PO
     Route: 048
     Dates: start: 20080410, end: 20080423

REACTIONS (2)
  - DIARRHOEA [None]
  - TREATMENT FAILURE [None]
